FAERS Safety Report 9018497 (Version 1)
Quarter: 2013Q1

REPORT INFORMATION
  Report Type: Spontaneous
  Country: US (occurrence: None)
  Receive Date: 20130111
  Receipt Date: 20130111
  Transmission Date: 20140127
  Serious: No
  Sender: FDA-Public Use
  Company Number: None

PATIENT
  Age: 5 Year
  Sex: Female

DRUGS (3)
  1. FOSPHENYTOIN [Suspect]
     Dates: start: 20090721, end: 20090803
  2. PHENOBARBITAL [Suspect]
     Dates: start: 20090724, end: 20090805
  3. BACTRIM [Suspect]
     Dates: start: 20090802, end: 20090802

REACTIONS (9)
  - Pyrexia [None]
  - Culture urine positive [None]
  - Escherichia infection [None]
  - Aspartate aminotransferase increased [None]
  - Alanine aminotransferase increased [None]
  - Rash morbilliform [None]
  - International normalised ratio increased [None]
  - Blood bilirubin increased [None]
  - Jaundice [None]
